FAERS Safety Report 5546821-3 (Version None)
Quarter: 2007Q4

REPORT INFORMATION
  Report Type: 
  Country: None (occurrence: None)
  Receive Date: 20071126
  Receipt Date: 20070518
  Transmission Date: 20080405
  Serious: Yes (Other)
  Sender: FDA-Public Use
  Company Number: 2007BH004539

PATIENT
  Age: 64 Year
  Sex: Female

DRUGS (2)
  1. DIANEAL [Suspect]
     Indication: RENAL FAILURE CHRONIC
     Dosage: 14 L; EVERY DAY; IP
     Route: 033
     Dates: start: 20040601
  2. DIANEAL [Suspect]
     Indication: RENAL FAILURE CHRONIC
     Dosage: ;AS NEEDED; IP
     Route: 033
     Dates: start: 20040601

REACTIONS (1)
  - PERITONITIS BACTERIAL [None]
